FAERS Safety Report 19101934 (Version 1)
Quarter: 2021Q2

REPORT INFORMATION
  Report Type: Spontaneous
  Country: US (occurrence: US)
  Receive Date: 20210407
  Receipt Date: 20210407
  Transmission Date: 20210717
  Serious: Yes (Life-Threatening, Hospitalization, Disabling)
  Sender: FDA-Public Use
  Company Number: None

PATIENT
  Age: 38 Year
  Sex: Female
  Weight: 47.25 kg

DRUGS (5)
  1. TRIAMCINOLONE CREAM [Concomitant]
     Active Substance: TRIAMCINOLONE
  2. ONE?A?DAY GUMMIES FOR WOMEN [Concomitant]
  3. DOXYCYCLINE MONO [Concomitant]
     Active Substance: DOXYCYCLINE
  4. IBUPROFEN. [Suspect]
     Active Substance: IBUPROFEN
     Indication: PAIN
     Dosage: ?          QUANTITY:1 TABLET(S);?
     Route: 048
     Dates: start: 20180601, end: 20210101
  5. PREDNISONE. [Concomitant]
     Active Substance: PREDNISONE

REACTIONS (10)
  - Skin exfoliation [None]
  - Rash [None]
  - Stevens-Johnson syndrome [None]
  - Rash papular [None]
  - Skin infection [None]
  - Pain of skin [None]
  - Dermatitis [None]
  - Erythema [None]
  - Drug hypersensitivity [None]
  - Rash pruritic [None]

NARRATIVE: CASE EVENT DATE: 20180601
